FAERS Safety Report 9460451 (Version 1)
Quarter: 2013Q3

REPORT INFORMATION
  Report Type: Spontaneous
  Country: CA (occurrence: CA)
  Receive Date: 20130815
  Receipt Date: 20130815
  Transmission Date: 20140515
  Serious: Yes (Hospitalization)
  Sender: FDA-Public Use
  Company Number: PHHY2013CA084660

PATIENT
  Age: 5 Year
  Sex: Male

DRUGS (2)
  1. ISONIAZID [Suspect]
     Indication: TUBERCULOSIS
     Dosage: 200 MG, PER DAY (11 MG/KG DAILY)
  2. PYRIDOXINE [Concomitant]
     Indication: TUBERCULOSIS

REACTIONS (6)
  - Hepatic encephalopathy [Unknown]
  - Hepatic cirrhosis [Unknown]
  - Hepatotoxicity [Recovering/Resolving]
  - Hepatitis acute [Recovering/Resolving]
  - Abdominal pain [Recovering/Resolving]
  - Vomiting [Recovering/Resolving]
